FAERS Safety Report 7533877-1 (Version None)
Quarter: 2011Q2

REPORT INFORMATION
  Report Type: 
  Country: None (occurrence: None)
  Receive Date: 20110608
  Receipt Date: 20060605
  Transmission Date: 20111010
  Serious: Yes (Hospitalization, Other)
  Sender: FDA-Public Use
  Company Number: PHNU2006AU02208

PATIENT
  Age: 50 Year
  Sex: Male

DRUGS (4)
  1. CLOZAPINE [Suspect]
     Dosage: 25 MG/DAY
     Route: 048
     Dates: start: 20060502, end: 20060505
  2. STELAZINE [Concomitant]
     Indication: SCHIZOPHRENIA
     Dosage: 20 MG/DAY
     Dates: end: 20060301
  3. CLOZAPINE [Suspect]
     Indication: SCHIZOPHRENIA
     Dosage: TO 200 MG/DAY
     Route: 048
     Dates: start: 20060404, end: 20060401
  4. MIRTAZAPINE [Concomitant]
     Dosage: 30 MG/DAY
     Dates: end: 20060301

REACTIONS (21)
  - DIARRHOEA [None]
  - NAUSEA [None]
  - SEPSIS [None]
  - PNEUMONIA [None]
  - LOWER RESPIRATORY TRACT INFECTION [None]
  - BLOOD ELECTROLYTES ABNORMAL [None]
  - LUNG CONSOLIDATION [None]
  - C-REACTIVE PROTEIN INCREASED [None]
  - ANGINA PECTORIS [None]
  - DYSPNOEA EXERTIONAL [None]
  - PYREXIA [None]
  - LEFT VENTRICULAR DYSFUNCTION [None]
  - CREPITATIONS [None]
  - CHEST X-RAY ABNORMAL [None]
  - MALAISE [None]
  - GASTROENTERITIS [None]
  - TROPONIN T INCREASED [None]
  - WHITE BLOOD CELL COUNT INCREASED [None]
  - LIVER FUNCTION TEST ABNORMAL [None]
  - SOMNOLENCE [None]
  - SINUS TACHYCARDIA [None]
